FAERS Safety Report 6925344-0 (Version None)
Quarter: 2010Q3

REPORT INFORMATION
  Report Type: 
  Country: None (occurrence: None)
  Receive Date: 20100811
  Receipt Date: 20100803
  Transmission Date: 20110219
  Serious: No
  Sender: FDA-Public Use
  Company Number: 2010EU003666

PATIENT
  Age: 8 Year
  Sex: Female

DRUGS (1)
  1. TACROLIMUS [Suspect]
     Indication: DERMATITIS INFECTED
     Dosage: 0.1%, D
     Dates: start: 20080701

REACTIONS (2)
  - LYMPHADENOPATHY [None]
  - MONONUCLEOSIS SYNDROME [None]
